FAERS Safety Report 9389101 (Version 1)
Quarter: 2013Q3

REPORT INFORMATION
  Report Type: Spontaneous
  Country: US (occurrence: US)
  Receive Date: 20130708
  Receipt Date: 20130708
  Transmission Date: 20140515
  Serious: No
  Sender: FDA-Public Use
  Company Number: US-AMGEN-USASP2013035626

PATIENT
  Age: 40 Year
  Sex: Male

DRUGS (1)
  1. ENBREL [Suspect]
     Indication: PSORIASIS
     Dosage: 50 MG, ONCE IN A WEEK
     Route: 058
     Dates: start: 20130503

REACTIONS (2)
  - Back pain [Not Recovered/Not Resolved]
  - Accident at work [Not Recovered/Not Resolved]
